FAERS Safety Report 8773575 (Version 1)
Quarter: 2012Q4

REPORT INFORMATION
  Report Type: 
  Country: FR (occurrence: FR)
  Receive Date: 20120907
  Receipt Date: 20120907
  Transmission Date: 20130627
  Serious: Yes (Hospitalization)
  Sender: FDA-Public Use
  Company Number: PHHY2012FR077390

PATIENT
  Age: 30 Year
  Sex: Female

DRUGS (5)
  1. TEGRETOL LP [Suspect]
     Dosage: 400 mg, QD
     Route: 048
  2. TEGRETOL LP [Suspect]
     Dosage: 200 mg, QD
     Route: 048
  3. DEPAKINE CHRONO [Suspect]
     Dosage: 0.5 DF, QD
  4. TRILEPTAL [Concomitant]
     Dosage: 150 mg, QD
  5. TRILEPTAL [Concomitant]
     Dosage: 150 mg, BID

REACTIONS (7)
  - Toxic encephalopathy [Recovered/Resolved]
  - Psychomotor skills impaired [Unknown]
  - Dysarthria [Unknown]
  - Dizziness [Unknown]
  - Headache [Unknown]
  - Epilepsy [Unknown]
  - Drug level increased [Unknown]
